FAERS Safety Report 24999967 (Version 1)
Quarter: 2025Q1

REPORT INFORMATION
  Report Type: Spontaneous
  Country: US (occurrence: US)
  Receive Date: 20250222
  Receipt Date: 20250222
  Transmission Date: 20250409
  Serious: No
  Sender: SANOFI AVENTIS
  Company Number: US-SA-2025SA017856

PATIENT
  Age: 1 Year
  Sex: Female
  Weight: 10.32 kg

DRUGS (2)
  1. LUMIZYME [Suspect]
     Active Substance: ALGLUCOSIDASE ALFA
     Indication: Glycogen storage disease type II
     Dosage: 350 MG, QW
     Route: 042
     Dates: start: 20241203, end: 202412
  2. LUMIZYME [Suspect]
     Active Substance: ALGLUCOSIDASE ALFA
     Dosage: 350 MG, QW
     Route: 042
     Dates: end: 2025

REACTIONS (4)
  - Influenza [Unknown]
  - Pyrexia [Unknown]
  - Central venous catheterisation [Unknown]
  - Inappropriate schedule of product administration [Unknown]

NARRATIVE: CASE EVENT DATE: 20241203
